FAERS Safety Report 5234793-0 (Version None)
Quarter: 2007Q1

REPORT INFORMATION
  Report Type: 
  Country: None (occurrence: None)
  Receive Date: 20070209
  Receipt Date: 20070130
  Transmission Date: 20070707
  Serious: Yes (Other)
  Sender: FDA-Public Use
  Company Number: US-PFIZER INC-2006153326

PATIENT
  Sex: Female

DRUGS (4)
  1. LIPITOR [Suspect]
     Indication: HYPERCHOLESTEROLAEMIA
     Dates: start: 20040901, end: 20040101
  2. VERAPAMIL [Concomitant]
  3. DYAZIDE [Concomitant]
  4. ACTIVELLA [Concomitant]

REACTIONS (8)
  - BLOOD CHOLESTEROL INCREASED [None]
  - ELECTROMYOGRAM ABNORMAL [None]
  - GAIT DISTURBANCE [None]
  - HYPERREFLEXIA [None]
  - MUSCULAR WEAKNESS [None]
  - MYOSITIS [None]
  - SPINAL COLUMN STENOSIS [None]
  - TREMOR [None]
